FAERS Safety Report 8170655 (Version 2)
Quarter: 2014Q2

REPORT INFORMATION
  Report Type: Spontaneous
  Country: GB (occurrence: GB)
  Receive Date: 20111006
  Receipt Date: 20140624
  Transmission Date: 20141212
  Serious: Yes (Other)
  Sender: FDA-Public Use
  Company Number: PHHY2011GB85643

PATIENT
  Age: 81 Year
  Sex: Female
  Weight: 55 kg

DRUGS (5)
  1. OMEPRAZOLE [Suspect]
     Indication: GASTROINTESTINAL PAIN
     Dosage: 20 MG, UNK
     Route: 048
     Dates: start: 20110819, end: 20110908
  2. DRONEDARONE [Concomitant]
     Indication: ATRIAL FIBRILLATION
     Dosage: 400 MG, UNK
     Route: 048
     Dates: start: 20110222
  3. FEXOFENADINE [Concomitant]
     Indication: HYPERSENSITIVITY
     Dosage: 180 MG, UNK
     Route: 048
     Dates: start: 20110802
  4. SIMVASTATIN [Concomitant]
     Indication: HYPERCHOLESTEROLAEMIA
     Dosage: 20 MG, UNK
     Route: 048
     Dates: start: 20050812
  5. WARFARIN [Concomitant]
     Indication: ATRIAL FIBRILLATION
     Dosage: 1 MG, UNK
     Dates: start: 20080311

REACTIONS (1)
  - Glomerular filtration rate decreased [Recovering/Resolving]
